FAERS Safety Report 7357372 (Version 1)
Quarter: 2020Q3

REPORT INFORMATION
  Report Type: Report from Study
  Country: CZ (occurrence: CZ)
  Receive Date: 20100416
  Receipt Date: 20100416
  Transmission Date: 20201105
  Serious: Yes (Hospitalization)
  Sender: FDA-Public Use
  Company Number: CZ-WYE-H14520410

PATIENT
  Age: 53 Year
  Sex: Male
  Weight: 71 kg

DRUGS (4)
  1. ROFERON?A [Suspect]
     Active Substance: INTERFERON ALFA-2A
     Indication: RENAL CANCER
     Dosage: 9MU THREE TIMES A WEEK
     Route: 058
     Dates: start: 20081202, end: 20090722
  2. ROFERON?A [Suspect]
     Active Substance: INTERFERON ALFA-2A
     Dosage: 9MU AT UNSPECIFIED FREQUENCY
     Route: 058
     Dates: start: 20090729, end: 20091027
  3. SECTRAL [Concomitant]
     Active Substance: ACEBUTOLOL HYDROCHLORIDE
     Route: 065
  4. AVASTIN [Suspect]
     Active Substance: BEVACIZUMAB
     Indication: RENAL CANCER
     Route: 042
     Dates: start: 20081202, end: 20091027

REACTIONS (1)
  - Anaemia [Recovered/Resolved]

NARRATIVE: CASE EVENT DATE: 20091026
